FAERS Safety Report 12951321 (Version 4)
Quarter: 2019Q4

REPORT INFORMATION
  Report Type: Report from Study
  Country: US (occurrence: US)
  Receive Date: 20161117
  Receipt Date: 20191004
  Transmission Date: 20200122
  Serious: Yes (Hospitalization)
  Sender: FDA-Public Use
  Company Number: US-PFIZER INC-2016471897

PATIENT
  Age: 77 Year
  Sex: Male
  Weight: 68.4 kg

DRUGS (37)
  1. FENTANYL CITRATE. [Suspect]
     Active Substance: FENTANYL CITRATE
     Indication: ANAESTHETIC PREMEDICATION
     Dosage: TOTAL 425 UG, GIVEN AT MULTIPLE TIMES
     Route: 042
     Dates: start: 20160930, end: 20160930
  2. METFORMIN [Concomitant]
     Active Substance: METFORMIN HYDROCHLORIDE
     Indication: DIABETES MELLITUS
     Dosage: UNK
     Dates: start: 20090416, end: 20160928
  3. THROMBIN [Concomitant]
     Active Substance: THROMBIN
     Indication: HAEMOSTASIS
     Dosage: UNK
     Dates: start: 20160930, end: 20160930
  4. PHENYLEPHRINE [Concomitant]
     Active Substance: PHENYLEPHRINE HYDROCHLORIDE
     Indication: NASAL CONGESTION
     Dosage: UNK
     Dates: start: 20160930, end: 20160930
  5. VANCOMYCIN [Concomitant]
     Active Substance: VANCOMYCIN
     Indication: PROPHYLAXIS
     Dosage: UNK
     Dates: start: 20160930, end: 20160930
  6. HYDRALAZINE [Concomitant]
     Active Substance: HYDRALAZINE HYDROCHLORIDE
     Indication: VASODILATATION
     Dosage: UNK
     Dates: start: 20160930, end: 20160930
  7. KETAMINE HCL [Suspect]
     Active Substance: KETAMINE HYDROCHLORIDE
     Indication: ANAESTHETIC PREMEDICATION
     Dosage: TOTAL 110 MG, CONTINUOUS FROM 08:30 TO 14:25
     Route: 042
     Dates: start: 20160930, end: 20160930
  8. HYDROCHLOROTHIAZIDE. [Concomitant]
     Active Substance: HYDROCHLOROTHIAZIDE
     Indication: HYPERTENSION
     Dosage: UNK
     Dates: start: 19950310, end: 20160929
  9. SIMVASTATIN. [Concomitant]
     Active Substance: SIMVASTATIN
     Indication: PROPHYLAXIS
     Dosage: UNK
     Dates: start: 20100101
  10. CHLORHEXIDINE GLUCONATE. [Concomitant]
     Active Substance: CHLORHEXIDINE GLUCONATE
     Indication: PROPHYLAXIS
     Dosage: UNK
     Route: 048
     Dates: start: 20150930
  11. ABSORBABLE GELATIN SPONGE [Concomitant]
     Indication: HAEMOSTASIS
     Dosage: UNK
     Dates: start: 20160930, end: 20160930
  12. LIDOCAINE HCL [Suspect]
     Active Substance: LIDOCAINE HYDROCHLORIDE
     Indication: ANAESTHETIC PREMEDICATION
     Dosage: 6 ML/HR, 8 TIMES THEN CONTINUOUS FROM 08:30 TO 14:30
     Route: 042
     Dates: start: 20160930, end: 20160930
  13. METHADONE [Suspect]
     Active Substance: METHADONE HYDROCHLORIDE
     Indication: PAIN
     Dosage: 5 MG, SINGLE
     Route: 042
     Dates: start: 20160930, end: 20160930
  14. ZOFRAN [Concomitant]
     Active Substance: ONDANSETRON HYDROCHLORIDE
     Indication: PROPHYLAXIS OF NAUSEA AND VOMITING
     Dosage: UNK
     Dates: start: 20160930, end: 20160930
  15. POLYMYXIN B SULFATE. [Concomitant]
     Active Substance: POLYMYXIN B SULFATE
     Indication: PROPHYLAXIS
     Dosage: UNK
     Dates: start: 20160930, end: 20160930
  16. DOCUSATE SODIUM. [Concomitant]
     Active Substance: DOCUSATE SODIUM
     Indication: CONSTIPATION PROPHYLAXIS
     Dosage: UNK
     Dates: start: 20160930, end: 20161002
  17. METOCLOPRAMIDE. [Concomitant]
     Active Substance: METOCLOPRAMIDE
     Indication: PROPHYLAXIS
     Dosage: UNK
     Dates: start: 20160930, end: 20161001
  18. FAMOTIDINE. [Concomitant]
     Active Substance: FAMOTIDINE
     Indication: PROPHYLAXIS
     Dosage: UNK
     Dates: start: 20160930
  19. BABY ASPIRIN [Concomitant]
     Active Substance: ASPIRIN
     Indication: PROPHYLAXIS
     Dosage: UNK
     Dates: start: 2013, end: 20160920
  20. CEFAZOLIN [Concomitant]
     Active Substance: CEFAZOLIN
     Indication: PROPHYLAXIS
     Dosage: UNK
     Dates: start: 20160930, end: 20161002
  21. MUPIROCIN. [Concomitant]
     Active Substance: MUPIROCIN
     Indication: PROPHYLAXIS
     Dosage: UNK
     Dates: start: 20160930, end: 20160930
  22. ACETAMINOPHEN. [Concomitant]
     Active Substance: ACETAMINOPHEN
     Indication: PAIN
     Dosage: UNK
     Dates: start: 20160930
  23. LACTATED RINGERS SOLUTION [Concomitant]
     Active Substance: CALCIUM CHLORIDE\POTASSIUM CHLORIDE\SODIUM CHLORIDE\SODIUM LACTATE
     Indication: SUPPLEMENTATION THERAPY
     Dosage: UNK
     Route: 042
     Dates: start: 20160930, end: 20160930
  24. CALCIUM CITRATE [Concomitant]
     Active Substance: CALCIUM CITRATE
     Indication: SUPPLEMENTATION THERAPY
     Dosage: UNK
     Dates: start: 20160930
  25. LISINOPRIL. [Concomitant]
     Active Substance: LISINOPRIL
     Indication: HYPERTENSION
     Dosage: UNK
     Dates: start: 20111028
  26. HYDROMORPHONE [Concomitant]
     Active Substance: HYDROMORPHONE
     Indication: PAIN
     Dosage: UNK
     Dates: start: 20160930, end: 20161001
  27. PLACEBO [Suspect]
     Active Substance: UNSPECIFIED INGREDIENT
     Indication: IMMUNISATION
     Dosage: UNK UNK, SINGLE
     Route: 030
     Dates: start: 20160916, end: 20160916
  28. ROCURONIUM BROMIDE. [Suspect]
     Active Substance: ROCURONIUM BROMIDE
     Indication: ANAESTHETIC PREMEDICATION
     Dosage: 30 MG, SINGLE
     Route: 042
     Dates: start: 20160930, end: 20160930
  29. DECADRON [Suspect]
     Active Substance: DEXAMETHASONE
     Indication: ANTIINFLAMMATORY THERAPY
     Dosage: 4 MG, SINGLE
     Route: 042
     Dates: start: 20160930, end: 20160930
  30. BUPIVACAINE. [Concomitant]
     Active Substance: BUPIVACAINE
     Indication: ANAESTHETIC PREMEDICATION
     Dosage: UNK
     Dates: start: 20160930, end: 20160930
  31. BUPIVACAINE-EPINEPHRINE [Concomitant]
     Active Substance: BUPIVACAINE\EPINEPHRINE
     Indication: ANAESTHETIC PREMEDICATION
     Dosage: UNK
     Dates: start: 20160930, end: 20160930
  32. GABAPENTIN. [Concomitant]
     Active Substance: GABAPENTIN
     Indication: PAIN
     Dosage: UNK
     Dates: start: 20160930, end: 20160930
  33. NORCO [Concomitant]
     Active Substance: ACETAMINOPHEN\HYDROCODONE BITARTRATE
     Indication: PAIN
     Dosage: UNK
     Dates: start: 20160930, end: 20161002
  34. PROPOFOL. [Suspect]
     Active Substance: PROPOFOL
     Indication: ANAESTHETIC PREMEDICATION
     Dosage: TOTAL 1240 MG, GIVEN AT 4 MULTIPLE TIMES, THEN CONTINUOUS FROM 08:50 TO 14:30
     Route: 042
     Dates: start: 20160930, end: 20160930
  35. BACITRACIN. [Concomitant]
     Active Substance: BACITRACIN
     Indication: PROPHYLAXIS
     Dosage: UNK
     Dates: start: 20160930, end: 20160930
  36. SODIUM CHLORIDE. [Concomitant]
     Active Substance: SODIUM CHLORIDE
     Indication: SUPPLEMENTATION THERAPY
     Dosage: UNK
     Dates: start: 20160930, end: 20161002
  37. SENNOSIDES. [Concomitant]
     Active Substance: SENNOSIDES
     Indication: CONSTIPATION PROPHYLAXIS
     Dosage: UNK
     Dates: start: 20160930, end: 20161002

REACTIONS (1)
  - Delirium [Recovered/Resolved]

NARRATIVE: CASE EVENT DATE: 20161001
